FAERS Safety Report 7412169-5 (Version None)
Quarter: 2011Q2

REPORT INFORMATION
  Report Type: 
  Country: None (occurrence: None)
  Receive Date: 20110405
  Receipt Date: 20110321
  Transmission Date: 20111010
  Serious: Yes (Hospitalization)
  Sender: FDA-Public Use
  Company Number: ALA_02180_2011

PATIENT
  Age: 45 Year
  Sex: Female
  Weight: 79.3341 kg

DRUGS (11)
  1. PREVACID [Suspect]
     Indication: PRODUCT USED FOR UNKNOWN INDICATION
     Dosage: (DF ORAL)
     Route: 048
  2. ASPIRIN [Concomitant]
  3. HYDROCHLOROTHIAZIDE [Concomitant]
  4. METFORMIN [Concomitant]
  5. REGLAN [Suspect]
     Indication: PRODUCT USED FOR UNKNOWN INDICATION
     Dosage: (DF ORAL)
     Route: 048
  6. METOPROLOL SUCCINATE [Concomitant]
  7. LIPITOR [Suspect]
     Indication: MYOCARDIAL INFARCTION
     Dosage: (80 MG QD ORAL)
     Route: 048
     Dates: start: 20110130
  8. PEPCID [Concomitant]
  9. LOSARTAN POTASSIUM [Concomitant]
  10. NITROSTAT [Concomitant]
  11. ISOSORBIDE MONONITRATE [Concomitant]

REACTIONS (2)
  - MYOCARDIAL INFARCTION [None]
  - MUSCLE SPASMS [None]
